FAERS Safety Report 11287270 (Version 5)
Quarter: 2015Q4

REPORT INFORMATION
  Report Type: Spontaneous
  Country: TR (occurrence: TR)
  Receive Date: 20150721
  Receipt Date: 20151009
  Transmission Date: 20160304
  Serious: Yes (Other)
  Sender: FDA-Public Use
  Company Number: TR-PFIZER INC-2015237215

PATIENT
  Age: 25 Year
  Sex: Female

DRUGS (1)
  1. DEPO-PROVERA [Suspect]
     Active Substance: MEDROXYPROGESTERONE ACETATE
     Indication: CONTRACEPTION
     Dosage: UNK, EVERY 3 MONTHS
     Dates: start: 20150708

REACTIONS (8)
  - Vision blurred [Recovered/Resolved]
  - Vertigo [Recovered/Resolved]
  - Mastitis [Recovered/Resolved]
  - Balance disorder [Recovered/Resolved]
  - Depression [Recovered/Resolved]
  - Inappropriate schedule of drug administration [Recovered/Resolved]
  - Headache [Recovered/Resolved]
  - Hypoaesthesia [Recovered/Resolved]

NARRATIVE: CASE EVENT DATE: 20150708
